FAERS Safety Report 4678318-7 (Version None)
Quarter: 2005Q2

REPORT INFORMATION
  Report Type: 
  Country: None (occurrence: None)
  Receive Date: 20050531
  Receipt Date: 20050531
  Transmission Date: 20051028
  Serious: Yes (Other)
  Sender: FDA-Public Use
  Company Number: None

PATIENT
  Age: 72 Year
  Sex: Female
  Weight: 63.5036 kg

DRUGS (1)
  1. OXYCONTIN [Suspect]
     Indication: ARTHRITIS
     Dosage: TWO  80 MG     DAILY    ORAL
     Route: 048
     Dates: start: 19950530, end: 20050530

REACTIONS (4)
  - AMNESIA [None]
  - DRUG DEPENDENCE [None]
  - FALL [None]
  - LOSS OF CONSCIOUSNESS [None]
